FAERS Safety Report 9802334 (Version 1)
Quarter: 2014Q1

REPORT INFORMATION
  Report Type: Spontaneous
  Country: US (occurrence: US)
  Receive Date: 20140107
  Receipt Date: 20140107
  Transmission Date: 20141002
  Serious: No
  Sender: FDA-Public Use
  Company Number: US-PFIZER INC-2014002091

PATIENT
  Age: 37 Year
  Sex: Male

DRUGS (5)
  1. CHANTIX [Suspect]
     Dosage: UNK
  2. LUVOX [Suspect]
     Dosage: UNK
  3. ZYPREXA [Suspect]
     Dosage: UNK
  4. AVELOX [Suspect]
     Dosage: UNK
  5. TORADOL [Suspect]
     Dosage: UNK

REACTIONS (1)
  - Drug hypersensitivity [Unknown]
